FAERS Safety Report 9449375 (Version 2)
Quarter: 2013Q3

REPORT INFORMATION
  Report Type: Spontaneous
  Country: US (occurrence: US)
  Receive Date: 20130809
  Receipt Date: 20130919
  Transmission Date: 20140515
  Serious: No
  Sender: FDA-Public Use
  Company Number: US-009507513-1307USA010438

PATIENT
  Age: 6 Year
  Sex: Female

DRUGS (1)
  1. NOXAFIL [Suspect]
     Indication: ZYGOMYCOSIS
     Dosage: UNK, TID
     Route: 048

REACTIONS (2)
  - Drug level decreased [Not Recovered/Not Resolved]
  - Off label use [Unknown]
